FAERS Safety Report 14970348 (Version 1)
Quarter: 2018Q2

REPORT INFORMATION
  Report Type: Spontaneous
  Country: US (occurrence: US)
  Receive Date: 20180604
  Receipt Date: 20180604
  Transmission Date: 20180711
  Serious: No
  Sender: FDA-Public Use
  Company Number: US-ALLERGAN-1770483US

PATIENT
  Age: 48 Year
  Sex: Female

DRUGS (3)
  1. KYBELLA [Suspect]
     Active Substance: DEOXYCHOLIC ACID
     Dosage: UNK UNK, SINGLE (SHE WAS TREATED WITH 6 MLS. THIS WAS HER 3RD SESSION OF KYBELLA)
     Route: 058
     Dates: start: 20171201, end: 20171201
  2. KYBELLA [Suspect]
     Active Substance: DEOXYCHOLIC ACID
     Dosage: UNK UNK, SINGLE (SHE WAS TREATED WITH 6 MLS. THIS WAS HER 3RD SESSION OF KYBELLA)
     Route: 058
     Dates: start: 20171020, end: 20171020
  3. KYBELLA [Suspect]
     Active Substance: DEOXYCHOLIC ACID
     Indication: FAT TISSUE INCREASED
     Dosage: UNK UNK, SINGLE (SHE WAS TREATED WITH 6 MLS. THIS WAS HER 3RD SESSION OF KYBELLA)
     Route: 058
     Dates: start: 20170915, end: 20170915

REACTIONS (2)
  - Nerve injury [Recovering/Resolving]
  - Facial asymmetry [Recovering/Resolving]
